FAERS Safety Report 16859431 (Version 4)
Quarter: 2025Q1

REPORT INFORMATION
  Report Type: Spontaneous
  Country: CA (occurrence: CA)
  Receive Date: 20190927
  Receipt Date: 20250326
  Transmission Date: 20250409
  Serious: Yes (Other)
  Sender: MYLAN
  Company Number: CA-TEVA-2019-CA-1113248

PATIENT
  Age: 63 Year
  Sex: Female

DRUGS (32)
  1. VENLAFAXINE HCL [Suspect]
     Active Substance: VENLAFAXINE HYDROCHLORIDE
     Indication: Non-small cell lung cancer metastatic
  2. VENLAFAXINE HCL [Suspect]
     Active Substance: VENLAFAXINE HYDROCHLORIDE
     Route: 065
  3. VENLAFAXINE HCL [Suspect]
     Active Substance: VENLAFAXINE HYDROCHLORIDE
     Route: 065
  4. VENLAFAXINE HCL [Suspect]
     Active Substance: VENLAFAXINE HYDROCHLORIDE
  5. VENLAFAXINE HYDROCHLORIDE [Suspect]
     Active Substance: VENLAFAXINE HYDROCHLORIDE
     Indication: Product used for unknown indication
  6. VENLAFAXINE HYDROCHLORIDE [Suspect]
     Active Substance: VENLAFAXINE HYDROCHLORIDE
     Route: 065
  7. VENLAFAXINE HYDROCHLORIDE [Suspect]
     Active Substance: VENLAFAXINE HYDROCHLORIDE
     Route: 065
  8. VENLAFAXINE HYDROCHLORIDE [Suspect]
     Active Substance: VENLAFAXINE HYDROCHLORIDE
  9. CISPLATIN [Suspect]
     Active Substance: CISPLATIN
     Indication: Non-small cell lung cancer metastatic
  10. CISPLATIN [Suspect]
     Active Substance: CISPLATIN
     Route: 065
  11. CISPLATIN [Suspect]
     Active Substance: CISPLATIN
     Route: 065
  12. CISPLATIN [Suspect]
     Active Substance: CISPLATIN
  13. ESOMEPRAZOLE MAGNESIUM [Suspect]
     Active Substance: ESOMEPRAZOLE MAGNESIUM
     Indication: Non-small cell lung cancer metastatic
  14. ESOMEPRAZOLE MAGNESIUM [Suspect]
     Active Substance: ESOMEPRAZOLE MAGNESIUM
     Route: 048
  15. ESOMEPRAZOLE MAGNESIUM [Suspect]
     Active Substance: ESOMEPRAZOLE MAGNESIUM
     Route: 048
  16. ESOMEPRAZOLE MAGNESIUM [Suspect]
     Active Substance: ESOMEPRAZOLE MAGNESIUM
  17. PEMETREXED [Suspect]
     Active Substance: PEMETREXED
     Indication: Non-small cell lung cancer metastatic
  18. PEMETREXED [Suspect]
     Active Substance: PEMETREXED
     Route: 065
  19. PEMETREXED [Suspect]
     Active Substance: PEMETREXED
     Route: 065
  20. PEMETREXED [Suspect]
     Active Substance: PEMETREXED
  21. ALIMTA [Suspect]
     Active Substance: PEMETREXED DISODIUM
     Indication: Non-small cell lung cancer metastatic
  22. ALIMTA [Suspect]
     Active Substance: PEMETREXED DISODIUM
     Route: 065
  23. ALIMTA [Suspect]
     Active Substance: PEMETREXED DISODIUM
     Route: 065
  24. ALIMTA [Suspect]
     Active Substance: PEMETREXED DISODIUM
  25. CISPLATIN\PEMETREXED [Suspect]
     Active Substance: CISPLATIN\PEMETREXED
     Indication: Non-small cell lung cancer metastatic
  26. CISPLATIN\PEMETREXED [Suspect]
     Active Substance: CISPLATIN\PEMETREXED
     Route: 065
  27. CISPLATIN\PEMETREXED [Suspect]
     Active Substance: CISPLATIN\PEMETREXED
     Route: 065
  28. CISPLATIN\PEMETREXED [Suspect]
     Active Substance: CISPLATIN\PEMETREXED
  29. ESOMEPRAZOLE [Suspect]
     Active Substance: ESOMEPRAZOLE
     Indication: Product used for unknown indication
  30. ESOMEPRAZOLE [Suspect]
     Active Substance: ESOMEPRAZOLE
     Route: 065
  31. ESOMEPRAZOLE [Suspect]
     Active Substance: ESOMEPRAZOLE
     Route: 065
  32. ESOMEPRAZOLE [Suspect]
     Active Substance: ESOMEPRAZOLE

REACTIONS (2)
  - Tubulointerstitial nephritis [Unknown]
  - Blood creatinine increased [Unknown]
